FAERS Safety Report 9809244 (Version 2)
Quarter: 2014Q1

REPORT INFORMATION
  Report Type: Report from Study
  Country: DE (occurrence: DE)
  Receive Date: 20140110
  Receipt Date: 20140110
  Transmission Date: 20141002
  Serious: Yes (Other)
  Sender: FDA-Public Use
  Company Number: DE-ABBVIE-13P-062-1175988-00

PATIENT
  Age: 71 Year
  Sex: Male
  Weight: 78 kg

DRUGS (1)
  1. LEUPRORELIN DEPOT [Suspect]
     Indication: PROSTATE CANCER
     Dates: start: 20120203

REACTIONS (2)
  - Metastases to bone [Unknown]
  - Prostatic specific antigen increased [Unknown]
